FAERS Safety Report 15278297 (Version 1)
Quarter: 2018Q3

REPORT INFORMATION
  Report Type: Spontaneous
  Country: US (occurrence: US)
  Receive Date: 20180814
  Receipt Date: 20180814
  Transmission Date: 20181010
  Serious: Yes (Other)
  Sender: FDA-Public Use
  Company Number: US-PFIZER INC-2018327255

PATIENT
  Age: 62 Year
  Sex: Female
  Weight: 79 kg

DRUGS (3)
  1. LYRICA [Suspect]
     Active Substance: PREGABALIN
     Dosage: 150 MG, 3X/DAY
     Route: 048
     Dates: end: 201808
  2. FENTANYL. [Concomitant]
     Active Substance: FENTANYL
     Indication: COMPLEX REGIONAL PAIN SYNDROME
     Dosage: UNK, EVERY HOUR DAILY
  3. LYRICA [Suspect]
     Active Substance: PREGABALIN
     Indication: COMPLEX REGIONAL PAIN SYNDROME
     Dosage: 100 MG, UNK
     Route: 048

REACTIONS (5)
  - Hypersensitivity [Unknown]
  - Pain [Not Recovered/Not Resolved]
  - Mobility decreased [Unknown]
  - Mental impairment [Unknown]
  - Product use in unapproved indication [Not Recovered/Not Resolved]
